FAERS Safety Report 25821948 (Version 1)
Quarter: 2025Q3

REPORT INFORMATION
  Report Type: Report from Study
  Country: US (occurrence: US)
  Receive Date: 20250919
  Receipt Date: 20250919
  Transmission Date: 20251020
  Serious: Yes (Death, Hospitalization, Other)
  Sender: ACADIA PHARMACEUTICALS
  Company Number: US-ACADIA PHARMACEUTICALS INC.-ACA-2025-PIM-010368

PATIENT
  Age: 86 Year
  Sex: Male

DRUGS (10)
  1. NUPLAZID [Suspect]
     Active Substance: PIMAVANSERIN TARTRATE
     Indication: Hallucination
     Dosage: 34 MILLIGRAM, QD
     Route: 048
     Dates: start: 20240930
  2. COZAAR [Concomitant]
     Active Substance: LOSARTAN POTASSIUM
  3. RETIN-A [Concomitant]
     Active Substance: TRETINOIN
  4. RYTARY [Concomitant]
     Active Substance: CARBIDOPA\LEVODOPA
  5. COLACE [Concomitant]
     Active Substance: DOCUSATE SODIUM
  6. FLOMAX [Concomitant]
     Active Substance: TAMSULOSIN HYDROCHLORIDE
  7. PROSCAR [Concomitant]
     Active Substance: FINASTERIDE
  8. COREG [Concomitant]
     Active Substance: CARVEDILOL
  9. KLONOPIN [Concomitant]
     Active Substance: CLONAZEPAM
  10. SPIRIVA [Concomitant]
     Active Substance: TIOTROPIUM BROMIDE MONOHYDRATE

REACTIONS (2)
  - Death [Fatal]
  - Clostridium difficile infection [Recovered/Resolved]

NARRATIVE: CASE EVENT DATE: 20250814
